FAERS Safety Report 23093390 (Version 1)
Quarter: 2023Q4

REPORT INFORMATION
  Report Type: Spontaneous
  Country: CZ (occurrence: CZ)
  Receive Date: 20231022
  Receipt Date: 20231022
  Transmission Date: 20240109
  Serious: Yes (Other)
  Sender: FDA-Public Use
  Company Number: CZ-ABBVIE-5456528

PATIENT
  Age: 63 Year
  Sex: Female

DRUGS (1)
  1. VENETOCLAX [Suspect]
     Active Substance: VENETOCLAX
     Indication: Acute myeloid leukaemia
     Route: 048

REACTIONS (1)
  - Disease recurrence [Unknown]

NARRATIVE: CASE EVENT DATE: 20230101
